FAERS Safety Report 5033343-1 (Version None)
Quarter: 2006Q2

REPORT INFORMATION
  Report Type: 
  Country: None (occurrence: None)
  Receive Date: 20060515
  Receipt Date: 20060316
  Transmission Date: 20061013
  Serious: No
  Sender: FDA-Public Use
  Company Number: S06-USA-01179-01

PATIENT
  Age: 94 Year
  Sex: Male

DRUGS (2)
  1. NAMENDA [Suspect]
     Dosage: 5 MG QD PO
     Route: 048
  2. NAMENDA [Suspect]

REACTIONS (1)
  - DECREASED APPETITE [None]
